FAERS Safety Report 12620815 (Version 1)
Quarter: 2016Q3

REPORT INFORMATION
  Report Type: Spontaneous
  Country: ES (occurrence: ES)
  Receive Date: 20160804
  Receipt Date: 20160804
  Transmission Date: 20161109
  Serious: Yes (Other)
  Sender: FDA-Public Use
  Company Number: ES-ROCHE-1804676

PATIENT
  Age: 41 Year
  Sex: Female

DRUGS (3)
  1. XOLAIR [Suspect]
     Active Substance: OMALIZUMAB
     Indication: PRODUCT USED FOR UNKNOWN INDICATION
     Dosage: UNK
     Route: 065
  2. ZOMIG [Concomitant]
     Active Substance: ZOLMITRIPTAN
     Indication: MIGRAINE
     Route: 065
  3. BILASTINE [Concomitant]
     Active Substance: BILASTINE
     Indication: URTICARIA CHRONIC
     Route: 065
     Dates: start: 20150118, end: 20150821

REACTIONS (2)
  - Pregnancy [Unknown]
  - Pregnancy on oral contraceptive [Unknown]
